FAERS Safety Report 20659847 (Version 1)
Quarter: 2022Q1

REPORT INFORMATION
  Report Type: Spontaneous
  Country: ES (occurrence: ES)
  Receive Date: 20220331
  Receipt Date: 20220331
  Transmission Date: 20220424
  Serious: Yes (Life-Threatening)
  Sender: FDA-Public Use
  Company Number: None

PATIENT
  Age: 65 Year
  Sex: Female

DRUGS (5)
  1. FILGRASTIM [Suspect]
     Active Substance: FILGRASTIM
     Indication: Stem cell transplant
     Dosage: FILGRASTIM (7089A)
     Route: 058
     Dates: start: 202110, end: 202110
  2. LENALIDOMIDE [Suspect]
     Active Substance: LENALIDOMIDE
     Indication: Plasma cell myeloma
     Dosage: LENALIDOMIDA (8089A), FREQUENCY TIME 1 CYCLICAL, DURATION 86 DAYS
     Route: 048
     Dates: start: 20210707, end: 20210930
  3. MOZOBIL [Suspect]
     Active Substance: PLERIXAFOR
     Indication: Stem cell transplant
     Dosage: 1 VIAL OF 1.2 ML, STRENGTH: 20 MG/ML
     Route: 058
     Dates: start: 202110, end: 202110
  4. CARFILZOMIB [Suspect]
     Active Substance: CARFILZOMIB
     Indication: Plasma cell myeloma
     Dosage: CARFILZOMIB (8655A), FREQUENCY TIME 1 CYCLICAL, DURATION  86 DAYS
     Route: 042
     Dates: start: 20210707, end: 20210930
  5. DEXAMETHASONE [Concomitant]
     Active Substance: DEXAMETHASONE
     Indication: Plasma cell myeloma
     Dosage: DEXAMETASONA (722A), FREQUENCY TIME 1 CYCLICAL, DURATION 86 DAYS
     Route: 065
     Dates: start: 20210707, end: 20210930

REACTIONS (1)
  - Pulmonary embolism [Recovering/Resolving]

NARRATIVE: CASE EVENT DATE: 20211103
